FAERS Safety Report 8760444 (Version 1)
Quarter: 2012Q4

REPORT INFORMATION
  Report Type: Spontaneous
  Country: US (occurrence: None)
  Receive Date: 20120829
  Receipt Date: 20120829
  Transmission Date: 20130627
  Serious: Yes (Hospitalization)
  Sender: FDA-Public Use
  Company Number: None

PATIENT
  Age: 41 Year
  Sex: Female

DRUGS (1)
  1. LITHIUM [Suspect]
     Indication: PARANOID TYPE SCHIZOPHRENIA, UNSPECIFIED STATE
     Route: 048
     Dates: start: 20120523, end: 20120613

REACTIONS (9)
  - Dysarthria [None]
  - Muscle twitching [None]
  - Disorientation [None]
  - Polyuria [None]
  - Somnolence [None]
  - Incorrect dose administered [None]
  - Gait disturbance [None]
  - Confusional state [None]
  - Sedation [None]
